FAERS Safety Report 24627237 (Version 2)
Quarter: 2024Q4

REPORT INFORMATION
  Report Type: Spontaneous
  Country: GR (occurrence: GR)
  Receive Date: 20241116
  Receipt Date: 20241126
  Transmission Date: 20250115
  Serious: Yes (Other)
  Sender: CELLTRION
  Company Number: GR-CELLTRION INC.-2024GR028275

PATIENT

DRUGS (3)
  1. INFLIXIMAB [Suspect]
     Active Substance: INFLIXIMAB
     Indication: Crohn^s disease
     Dosage: 300 MG (3X100MG), EVERY 2 WEEKS
     Route: 041
     Dates: start: 20241004, end: 20241101
  2. INFLIXIMAB [Suspect]
     Active Substance: INFLIXIMAB
     Dosage: 300 MG (3X100MG), EVERY 2 WEEKS
     Route: 041
  3. INFLIXIMAB [Suspect]
     Active Substance: INFLIXIMAB
     Dosage: 300 MG (3X100MG), EVERY 2 WEEKS
     Route: 041

REACTIONS (2)
  - Crohn^s disease [Recovering/Resolving]
  - Intentional product use issue [Unknown]
